FAERS Safety Report 7389453-7 (Version None)
Quarter: 2011Q2

REPORT INFORMATION
  Report Type: 
  Country: None (occurrence: None)
  Receive Date: 20110401
  Receipt Date: 20110325
  Transmission Date: 20111010
  Serious: Yes (Hospitalization)
  Sender: FDA-Public Use
  Company Number: US-BRISTOL-MYERS SQUIBB COMPANY-14987200

PATIENT
  Age: 36 Year
  Sex: Male
  Weight: 147 kg

DRUGS (12)
  1. LAMISIL [Concomitant]
     Dosage: 1DF:250 UNITS NOS* 4 WEEKS LOTION BID
  2. ABILIFY [Suspect]
     Indication: ANXIETY
     Dosage: STARTED 2009
     Route: 048
     Dates: start: 20080212
  3. LEVAQUIN [Concomitant]
     Dosage: 1DF:750 UNITS NOS
  4. DIFLUCAN [Concomitant]
     Route: 048
  5. PENICILLIN V POTASSIUM [Concomitant]
     Dosage: TABS; TAKEN 3 TABS
  6. SERAX [Concomitant]
  7. ABILIFY [Suspect]
     Indication: STRESS
     Dosage: STARTED 2009
     Route: 048
     Dates: start: 20080212
  8. DECADRON [Concomitant]
     Dosage: FOR 4 DAYS AND DAILY FOR3 DAYS
  9. ROBAXIN [Concomitant]
     Indication: MUSCLE SPASMS
  10. SEPTRA DS [Concomitant]
     Indication: CELLULITIS
     Dosage: 1DF: 2 TABS
  11. CORTISONE CREAM [Concomitant]
  12. OXAZEPAM [Concomitant]
     Indication: STRESS

REACTIONS (2)
  - PULMONARY EMBOLISM [None]
  - DEEP VEIN THROMBOSIS [None]
